FAERS Safety Report 6469297-0 (Version None)
Quarter: 2009Q4

REPORT INFORMATION
  Report Type: 
  Country: None (occurrence: None)
  Receive Date: 20091203
  Receipt Date: 20071018
  Transmission Date: 20100525
  Serious: Yes (Death, Life-Threatening, Hospitalization, Other)
  Sender: FDA-Public Use
  Company Number: US-ELI_LILLY_AND_COMPANY-US200707005362

PATIENT
  Age: 43 Year
  Sex: Male

DRUGS (5)
  1. CYMBALTA [Suspect]
     Indication: BACK PAIN
     Dosage: 60 MG, DAILY (1/D)
     Dates: end: 20070703
  2. OXYCODONE HCL [Concomitant]
  3. LISINOPRIL [Concomitant]
  4. PREGABALIN [Concomitant]
  5. METFORMIN HCL [Concomitant]

REACTIONS (4)
  - DEATH [None]
  - DEEP VEIN THROMBOSIS [None]
  - ENCEPHALOPATHY [None]
  - SEROTONIN SYNDROME [None]
